FAERS Safety Report 11277282 (Version 1)
Quarter: 2015Q3

REPORT INFORMATION
  Report Type: Spontaneous
  Country: AU (occurrence: AU)
  Receive Date: 20150716
  Receipt Date: 20150716
  Transmission Date: 20151125
  Serious: Yes (Death)
  Sender: FDA-Public Use
  Company Number: AU-BAXTER-2013BAX045373

PATIENT
  Age: 60 Year
  Sex: Male

DRUGS (1)
  1. SYNTHAMIN [Suspect]
     Active Substance: AMINO ACIDS
     Indication: PARENTERAL NUTRITION
     Route: 065
     Dates: end: 20131109

REACTIONS (1)
  - Death [Fatal]

NARRATIVE: CASE EVENT DATE: 20131109
